FAERS Safety Report 14229244 (Version 1)
Quarter: 2017Q4

REPORT INFORMATION
  Report Type: Spontaneous
  Country: US (occurrence: None)
  Receive Date: 20171125
  Receipt Date: 20171125
  Transmission Date: 20180321
  Serious: No
  Sender: FDA-Public Use
  Company Number: None

PATIENT
  Sex: Female

DRUGS (1)
  1. FORTEO [Suspect]
     Active Substance: TERIPARATIDE
     Indication: OSTEOPOROSIS
     Route: 058
     Dates: start: 20170908, end: 20171022

REACTIONS (6)
  - Therapy cessation [None]
  - Dizziness [None]
  - Nausea [None]
  - Dyspepsia [None]
  - Arthralgia [None]
  - Retching [None]
